FAERS Safety Report 15801949 (Version 1)
Quarter: 2019Q1

REPORT INFORMATION
  Report Type: Spontaneous
  Country: US (occurrence: US)
  Receive Date: 20190109
  Receipt Date: 20190109
  Transmission Date: 20190417
  Serious: Yes (Other)
  Sender: FDA-Public Use
  Company Number: US-ACCORD-100720

PATIENT
  Age: 36 Year
  Sex: Female
  Weight: 73 kg

DRUGS (9)
  1. DILTIAZEM. [Concomitant]
     Active Substance: DILTIAZEM
     Indication: HYPERTENSION
  2. COLCHICINE. [Concomitant]
     Active Substance: COLCHICINE
  3. PREDNISONE. [Suspect]
     Active Substance: PREDNISONE
     Indication: IMMUNOSUPPRESSANT DRUG THERAPY
  4. CICLOSPORIN [Suspect]
     Active Substance: CYCLOSPORINE
     Indication: IMMUNOSUPPRESSANT DRUG THERAPY
  5. CALCIUM CITRATE [Concomitant]
     Active Substance: CALCIUM CITRATE
     Indication: OSTEOPOROSIS
     Dosage: SLOW RELEASE
  6. HYDROCODONE BITARTRATE/PARACETAMOL [Concomitant]
     Dosage: 5/325 MG 3 TIMES DAILY AS NEEDED
  7. MYCOPHENOLIC ACID. [Suspect]
     Active Substance: MYCOPHENOLIC ACID
     Indication: IMMUNOSUPPRESSANT DRUG THERAPY
  8. SIMVASTATIN. [Concomitant]
     Active Substance: SIMVASTATIN
     Indication: HYPERLIPIDAEMIA
  9. FENTANYL. [Concomitant]
     Active Substance: FENTANYL
     Dosage: RELEASE RATE OF 100 MG/H, ONCE EVERY 3 DAYS
     Route: 062

REACTIONS (2)
  - Gouty tophus [Recovered/Resolved]
  - Quality of life decreased [Recovering/Resolving]
